FAERS Safety Report 10729997 (Version 2)
Quarter: 2015Q2

REPORT INFORMATION
  Report Type: Spontaneous
  Country: IT (occurrence: IT)
  Receive Date: 20150122
  Receipt Date: 20150514
  Transmission Date: 20150821
  Serious: Yes (Disabling)
  Sender: FDA-Public Use
  Company Number: IT-PFIZER INC-2015026966

PATIENT
  Age: 18 Year
  Sex: Male

DRUGS (9)
  1. MIFAMURTIDE [Suspect]
     Active Substance: MIFAMURTIDE
     Indication: OSTEOSARCOMA
     Dosage: 2 MG/M2, CYCLIC
  2. CLONAZEPAM. [Concomitant]
     Active Substance: CLONAZEPAM
  3. DOXORUBICIN HCL [Suspect]
     Active Substance: DOXORUBICIN HYDROCHLORIDE
     Indication: OSTEOSARCOMA
     Dosage: 1 DF, CYCLIC
  4. FILGRASTIM [Suspect]
     Active Substance: FILGRASTIM
     Indication: OSTEOSARCOMA
     Dosage: 1 DF, CYCLIC
  5. IFOSFAMIDE. [Suspect]
     Active Substance: IFOSFAMIDE
     Dosage: 3 G/M2, CYCLIC
  6. PYRIDOXINE HYDROCHLORIDE. [Concomitant]
     Active Substance: PYRIDOXINE HYDROCHLORIDE
  7. CYANOCOBALAMIN. [Concomitant]
     Active Substance: CYANOCOBALAMIN
  8. PREGABALIN. [Concomitant]
     Active Substance: PREGABALIN
  9. METHYLTHIONINIUM CHLORIDE [Concomitant]
     Active Substance: METHYLENE BLUE

REACTIONS (4)
  - Neuralgia [Recovered/Resolved with Sequelae]
  - Allodynia [Recovered/Resolved with Sequelae]
  - Nystagmus [Recovered/Resolved with Sequelae]
  - Dysaesthesia [Recovered/Resolved with Sequelae]
